FAERS Safety Report 8500094-8 (Version None)
Quarter: 2012Q3

REPORT INFORMATION
  Report Type: 
  Country: None (occurrence: None)
  Receive Date: 20120710
  Receipt Date: 20120706
  Transmission Date: 20120928
  Serious: No
  Sender: FDA-Public Use
  Company Number: US-TEVA-347181USA

PATIENT
  Age: 47 Year
  Sex: Female
  Weight: 54.48 kg

DRUGS (1)
  1. COPAXONE [Suspect]
     Indication: MULTIPLE SCLEROSIS
     Route: 058

REACTIONS (3)
  - SKIN LESION [None]
  - INJECTION SITE REACTION [None]
  - INJECTION SITE ERYTHEMA [None]
